FAERS Safety Report 14341417 (Version 1)
Quarter: 2018Q1

REPORT INFORMATION
  Report Type: Report from Study
  Country: JP (occurrence: JP)
  Receive Date: 20180102
  Receipt Date: 20180102
  Transmission Date: 20180509
  Serious: Yes (Other)
  Sender: FDA-Public Use
  Company Number: JP-CIPLA LTD.-2017JP29411

PATIENT

DRUGS (3)
  1. GEMCITABINE [Suspect]
     Active Substance: GEMCITABINE\GEMCITABINE HYDROCHLORIDE
     Indication: PLEURAL MESOTHELIOMA MALIGNANT
     Dosage: 800 MG/M2, 30 MIN INFUSION
     Route: 042
  2. METHOTREXATE. [Suspect]
     Active Substance: METHOTREXATE
     Indication: PLEURAL MESOTHELIOMA MALIGNANT
     Dosage: 100 MG/M2, 30 MIN INFUSION
     Route: 042
  3. LEUCOVORIN. [Suspect]
     Active Substance: LEUCOVORIN
     Indication: PLEURAL MESOTHELIOMA MALIGNANT
     Dosage: 10 MG/M2, PO OR IV 4 TIMES AT 6 HOUR INTERVALS
     Route: 065

REACTIONS (1)
  - Disease progression [Unknown]
